FAERS Safety Report 12544142 (Version 1)
Quarter: 2016Q3

REPORT INFORMATION
  Report Type: Other
  Country: DE (occurrence: DE)
  Receive Date: 20160711
  Receipt Date: 20160711
  Transmission Date: 20161109
  Serious: Yes (Congenital Anomaly)
  Sender: FDA-Public Use
  Company Number: DE-LUPIN PHARMACEUTICALS INC.-E2B_00005745

PATIENT
  Sex: Male

DRUGS (4)
  1. VOMEX A [Concomitant]
     Active Substance: DIMENHYDRINATE
     Indication: VOMITING
     Route: 064
  2. SERTRALINE [Suspect]
     Active Substance: SERTRALINE HYDROCHLORIDE
     Indication: ANXIETY DISORDER
     Route: 064
     Dates: start: 20150627, end: 20151111
  3. PARACETAMOL [Concomitant]
     Active Substance: ACETAMINOPHEN
     Indication: PYREXIA
     Route: 064
  4. MISOPROSTOL. [Concomitant]
     Active Substance: MISOPROSTOL
     Indication: LABOUR INDUCTION
     Route: 064

REACTIONS (4)
  - Micrognathia [Not Recovered/Not Resolved]
  - Talipes [Not Recovered/Not Resolved]
  - Vitello-intestinal duct remnant [Not Recovered/Not Resolved]
  - Foetal exposure during pregnancy [Unknown]
